FAERS Safety Report 16017986 (Version 1)
Quarter: 2019Q1

REPORT INFORMATION
  Report Type: Spontaneous
  Country: US (occurrence: US)
  Receive Date: 20190225
  Receipt Date: 20190225
  Transmission Date: 20190418
  Serious: No
  Sender: FDA-Public Use
  Company Number: None

PATIENT
  Sex: Female

DRUGS (1)
  1. IMATINIB MESYLATE 400MG SUN PHARMACEUTICAL [Suspect]
     Active Substance: IMATINIB MESYLATE
     Indication: CHRONIC MYELOID LEUKAEMIA
     Route: 048
     Dates: start: 20160225

REACTIONS (6)
  - Night sweats [None]
  - Condition aggravated [None]
  - Nausea [None]
  - Fatigue [None]
  - Headache [None]
  - Product substitution issue [None]
